FAERS Safety Report 8105202-9 (Version None)
Quarter: 2011Q4

REPORT INFORMATION
  Report Type: 
  Country: None (occurrence: None)
  Receive Date: 20111222
  Receipt Date: 20111101
  Transmission Date: 20120403
  Serious: Yes (Hospitalization)
  Sender: FDA-Public Use
  Company Number: UTC-011891

PATIENT
  Age: 62 Year
  Sex: Female
  Weight: 78.6 kg

DRUGS (4)
  1. TRACLEER [Concomitant]
  2. DIURETICS (DIURETICS [Concomitant]
  3. TYVASO [Suspect]
     Indication: PULMONARY ARTERIAL HYPERTENSION
     Dosage: 72 MCG (18 MCG, 4 IN 1 D), INHALATION
     Route: 055
     Dates: start: 20110624
  4. COUMADIN [Concomitant]

REACTIONS (1)
  - DYSPNOEA [None]
